FAERS Safety Report 7735745-9 (Version None)
Quarter: 2011Q3

REPORT INFORMATION
  Report Type: 
  Country: None (occurrence: None)
  Receive Date: 20110908
  Receipt Date: 20110829
  Transmission Date: 20111222
  Serious: Yes (Hospitalization, Other)
  Sender: FDA-Public Use
  Company Number: US-BIOGENIDEC-2010BI043307

PATIENT
  Sex: Female

DRUGS (5)
  1. AVONEX [Suspect]
     Indication: MULTIPLE SCLEROSIS
     Route: 030
     Dates: start: 19990701
  2. Q6 (NOS) [Concomitant]
  3. AVONEX [Suspect]
     Route: 030
     Dates: start: 20090109
  4. AVONEX [Suspect]
     Route: 030
     Dates: start: 20070808, end: 20071001
  5. FENTANYL-100 [Concomitant]

REACTIONS (22)
  - LUNG NEOPLASM [None]
  - HYPERTENSION [None]
  - BLOOD POTASSIUM DECREASED [None]
  - HYPOAESTHESIA [None]
  - MUSCLE SPASMS [None]
  - FATIGUE [None]
  - CONFUSIONAL STATE [None]
  - MULTIPLE SCLEROSIS [None]
  - ECG P WAVE INVERTED [None]
  - NEPHROLITHIASIS [None]
  - GAIT DISTURBANCE [None]
  - MOBILITY DECREASED [None]
  - NERVOUSNESS [None]
  - BENIGN NEOPLASM OF THYROID GLAND [None]
  - CORONARY ARTERY DISEASE [None]
  - CHEST PAIN [None]
  - MULTIPLE SCLEROSIS RELAPSE [None]
  - EYE DISORDER [None]
  - DRUG INEFFECTIVE [None]
  - BLOOD PRESSURE FLUCTUATION [None]
  - HYPOTENSION [None]
  - IN-STENT ARTERIAL RESTENOSIS [None]
